FAERS Safety Report 5886955-7 (Version None)
Quarter: 2008Q3

REPORT INFORMATION
  Report Type: 
  Country: None (occurrence: None)
  Receive Date: 20080917
  Receipt Date: 20080911
  Transmission Date: 20090109
  Serious: Yes (Hospitalization)
  Sender: FDA-Public Use
  Company Number: DE-ABBOTT-08P-062-0460532-00

PATIENT
  Sex: Female

DRUGS (6)
  1. HUMIRA [Suspect]
     Indication: RHEUMATOID ARTHRITIS
     Dosage: EVERY OTHER WEEK
     Route: 058
     Dates: start: 20060601, end: 20080601
  2. HUMIRA [Suspect]
     Route: 058
     Dates: start: 20080814
  3. CORTISONE [Concomitant]
     Indication: RHEUMATOID ARTHRITIS
  4. COXIBE (NOT SPECIFIED) [Concomitant]
     Indication: RHEUMATOID ARTHRITIS
     Route: 048
  5. PHENPROCOUMON [Concomitant]
     Indication: DRUG USE FOR UNKNOWN INDICATION
     Dates: start: 20080620
  6. PHENPROCOUMON [Concomitant]
     Dates: start: 20080621

REACTIONS (1)
  - SKIN ULCER [None]
